FAERS Safety Report 6466200-4 (Version None)
Quarter: 2009Q4

REPORT INFORMATION
  Report Type: 
  Country: None (occurrence: None)
  Receive Date: 20091202
  Receipt Date: 20091124
  Transmission Date: 20100525
  Serious: Yes (Hospitalization)
  Sender: FDA-Public Use
  Company Number: US-ROCHE-665347

PATIENT
  Sex: Female
  Weight: 68 kg

DRUGS (5)
  1. PEG-INTERFERON A-2A (RO 25-8310) [Suspect]
     Indication: HEPATITIS C
     Dosage: DOSE REPORTED AS: 180
     Route: 058
     Dates: start: 20090619, end: 20091009
  2. RIBAVIRIN [Suspect]
     Indication: HEPATITIS C
     Dosage: DOSE REPORTED AS 800. FREQUENCY: DAILY
     Route: 048
     Dates: start: 20090619, end: 20091009
  3. APAP TAB [Concomitant]
     Dosage: DRUG NAME: HC/ APAP. DOSE REPORTED AS 10/500
     Route: 048
  4. CODEINE SUL TAB [Concomitant]
     Dosage: DOSE REPORTED AS MG. FREQUENCY REPORTED AS: 1/1 1/2 TX DAILY
     Route: 048
  5. NIACIN [Concomitant]
     Route: 048

REACTIONS (3)
  - ANAEMIA [None]
  - PANCYTOPENIA [None]
  - SYNCOPE [None]
